FAERS Safety Report 7523026-8 (Version None)
Quarter: 2011Q2

REPORT INFORMATION
  Report Type: 
  Country: None (occurrence: None)
  Receive Date: 20110603
  Receipt Date: 20101011
  Transmission Date: 20111010
  Serious: No
  Sender: FDA-Public Use
  Company Number: US-BAYER-201036557NA

PATIENT
  Sex: Female

DRUGS (2)
  1. AVELOX [Suspect]
     Indication: ANTIBIOTIC THERAPY
     Dosage: UNK
     Dates: start: 20101002, end: 20101008
  2. ADVIL LIQUI-GELS [Concomitant]

REACTIONS (2)
  - PAIN IN EXTREMITY [None]
  - DIZZINESS [None]
